FAERS Safety Report 13534234 (Version 1)
Quarter: 2017Q2

REPORT INFORMATION
  Report Type: Spontaneous
  Country: None (occurrence: US)
  Receive Date: 20170510
  Receipt Date: 20170510
  Transmission Date: 20170830
  Serious: No
  Sender: FDA-Public Use
  Company Number: US-SPEAR PHARMACEUTICALS-2020565

PATIENT
  Age: 85 Year
  Sex: Female
  Weight: 45.46 kg

DRUGS (1)
  1. FLUOROURACIL. [Suspect]
     Active Substance: FLUOROURACIL
     Indication: ACTINIC KERATOSIS
     Route: 061
     Dates: start: 20160615, end: 20160623

REACTIONS (3)
  - Unevaluable event [None]
  - Hypersensitivity [None]
  - Swelling [None]

NARRATIVE: CASE EVENT DATE: 20160624
